FAERS Safety Report 9558219 (Version 1)
Quarter: 2013Q3

REPORT INFORMATION
  Report Type: Spontaneous
  Country: CA (occurrence: CA)
  Receive Date: 20130926
  Receipt Date: 20130926
  Transmission Date: 20140515
  Serious: Yes (Other)
  Sender: FDA-Public Use
  Company Number: PHHY2013CA104319

PATIENT
  Age: 65 Year
  Sex: Female

DRUGS (4)
  1. METHOTREXATE [Suspect]
     Indication: BREAST CANCER
  2. 5-FLUOROURACIL [Suspect]
     Indication: BREAST CANCER
  3. CYCLOPHOSPHAMIDE [Suspect]
     Indication: BREAST CANCER
  4. EXEMESTANE [Concomitant]
     Indication: BREAST CANCER

REACTIONS (3)
  - Cognitive disorder [Recovering/Resolving]
  - Memory impairment [Recovering/Resolving]
  - Disturbance in attention [Recovering/Resolving]
